FAERS Safety Report 8820132 (Version 2)
Quarter: 2013Q1

REPORT INFORMATION
  Report Type: Spontaneous
  Country: US (occurrence: US)
  Receive Date: 20121001
  Receipt Date: 20130206
  Transmission Date: 20140127
  Serious: Yes (Death, Disabling)
  Sender: FDA-Public Use
  Company Number: US-ROCHE-1139305

PATIENT
  Age: 43 Year
  Sex: Female
  Weight: 71.28 kg

DRUGS (32)
  1. XELODA [Suspect]
     Indication: METASTATIC GASTRIC CANCER
     Dosage: THERAPY START DATE: 11/JAN/2012;  IN A EACH CYCLE OF 21 DAYS
     Route: 048
  2. XELODA [Suspect]
     Dosage: THERAPY START DATE: 25/APR/2012
     Route: 048
     Dates: end: 20120904
  3. LIDOCAINE - PRILOCAINE [Concomitant]
     Dosage: STRENGTH: 2.5-5%, 1 APPLICATION DAILY
     Route: 061
  4. DEXAMETHASONE [Concomitant]
     Route: 048
  5. DEXAMETHASONE [Concomitant]
     Route: 048
  6. DEXAMETHASONE [Concomitant]
     Dosage: ONCE IN MORNING ON DAY 2, THEN TWICE A DAY ON DAYS 3 AND 4
     Route: 048
  7. ONDANSETRON HCL [Concomitant]
     Route: 048
  8. ONDANSETRON HCL [Concomitant]
     Route: 048
  9. FENTANYL [Concomitant]
     Dosage: 100 MCG/HR
     Route: 062
  10. FENTANYL [Concomitant]
     Dosage: 25 MCG/HR
     Route: 062
  11. ATROPINE [Concomitant]
     Dosage: 1-2 GTT
     Route: 060
  12. ESTRADIOL [Concomitant]
     Route: 062
  13. TYLENOL [Concomitant]
     Route: 048
  14. IBUPROFEN [Concomitant]
     Dosage: 2 TABLETS
     Route: 048
  15. MIRALAX [Concomitant]
     Route: 048
  16. LORAZEPAM [Concomitant]
     Route: 065
  17. METHADONE [Concomitant]
     Route: 048
  18. PROCHLORPERAZINE MALEATE [Concomitant]
     Route: 048
  19. MORPHINE [Concomitant]
     Route: 065
  20. MORPHINE [Concomitant]
     Route: 048
  21. SCOPOLAMINE NOS [Concomitant]
     Route: 062
  22. SUCRALFATE [Concomitant]
     Route: 048
  23. DOCUSATE [Concomitant]
     Route: 048
  24. CITALOPRAM [Concomitant]
     Route: 065
  25. LACTULOSE [Concomitant]
     Route: 048
  26. CIPROFLOXACIN [Concomitant]
     Route: 065
  27. LEVOFLOXACIN [Concomitant]
     Route: 065
  28. IRINOTECAN [Concomitant]
     Route: 065
     Dates: start: 20120702
  29. EPIRUBICIN [Concomitant]
     Route: 065
     Dates: start: 20120111
  30. CISPLATIN [Concomitant]
     Route: 065
     Dates: start: 20120111
  31. CISPLATIN [Concomitant]
     Route: 065
     Dates: start: 20120425, end: 201205
  32. DOXORUBICIN HCL [Concomitant]
     Route: 065
     Dates: start: 20120425, end: 201205

REACTIONS (3)
  - Metastatic gastric cancer [Fatal]
  - Anaemia [Not Recovered/Not Resolved]
  - Nausea [Not Recovered/Not Resolved]
